FAERS Safety Report 20937205 (Version 1)
Quarter: 2022Q2

REPORT INFORMATION
  Report Type: Spontaneous
  Country: US (occurrence: US)
  Receive Date: 20220609
  Receipt Date: 20220609
  Transmission Date: 20220721
  Serious: No
  Sender: FDA-Public Use
  Company Number: US-TEVA-2022-US-2037171

PATIENT
  Age: 51 Year
  Sex: Female

DRUGS (2)
  1. PROAIR HFA [Suspect]
     Active Substance: ALBUTEROL SULFATE
     Indication: Asthma
     Route: 065
  2. CORTICOSTEROID NOS [Concomitant]
     Active Substance: CORTICOSTEROID NOS
     Dosage: INHALER
     Route: 065

REACTIONS (6)
  - Drug hypersensitivity [Unknown]
  - Asthma [Unknown]
  - Drug ineffective [Unknown]
  - Thyroid disorder [Unknown]
  - Tooth loss [Unknown]
  - Tooth disorder [Unknown]
